FAERS Safety Report 5545834-5 (Version None)
Quarter: 2007Q4

REPORT INFORMATION
  Report Type: 
  Country: None (occurrence: None)
  Receive Date: 20071211
  Receipt Date: 20070904
  Transmission Date: 20080405
  Serious: Yes (Other)
  Sender: FDA-Public Use
  Company Number: US-ASTRAZENECA-2007UW20951

PATIENT

DRUGS (3)
  1. SYMBICORT [Suspect]
     Route: 055
  2. PULMICORT FLEXHALER [Concomitant]
  3. FORADIL [Concomitant]

REACTIONS (1)
  - ANGIOEDEMA [None]
